FAERS Safety Report 19504244 (Version 1)
Quarter: 2021Q3

REPORT INFORMATION
  Report Type: Report from Study
  Country: FR (occurrence: FR)
  Receive Date: 20210707
  Receipt Date: 20210707
  Transmission Date: 20211014
  Serious: Yes (Hospitalization)
  Sender: FDA-Public Use
  Company Number: FR-SHIRE-FR201809673

PATIENT
  Age: 62 Year
  Sex: Female
  Weight: 58 kg

DRUGS (47)
  1. TEDUGLUTIDE [Suspect]
     Active Substance: TEDUGLUTIDE
     Dosage: 2.8 MG, 1X/DAY:QD
     Route: 065
     Dates: start: 20160825, end: 20160908
  2. TEDUGLUTIDE [Suspect]
     Active Substance: TEDUGLUTIDE
     Dosage: 2.8 MG, 1X/DAY:QD
     Route: 065
     Dates: start: 20170214, end: 20170220
  3. TEDUGLUTIDE [Suspect]
     Active Substance: TEDUGLUTIDE
     Dosage: 2.6 MG, 1X/DAY:QD
     Route: 065
     Dates: start: 20170303, end: 20170411
  4. TEDUGLUTIDE [Suspect]
     Active Substance: TEDUGLUTIDE
     Dosage: 2.4 MILLIGRAM,(0.05MG/KG), QD
     Route: 065
     Dates: start: 20181130
  5. TEDUGLUTIDE [Suspect]
     Active Substance: TEDUGLUTIDE
     Indication: SHORT-BOWEL SYNDROME
     Dosage: 3 MG, 1X/DAY:QD
     Route: 065
     Dates: start: 20160804, end: 20160824
  6. TEDUGLUTIDE [Suspect]
     Active Substance: TEDUGLUTIDE
     Indication: SHORT-BOWEL SYNDROME
     Dosage: 3 MG, 1X/DAY:QD
     Route: 065
     Dates: start: 20160804, end: 20160824
  7. TEDUGLUTIDE [Suspect]
     Active Substance: TEDUGLUTIDE
     Dosage: 2.8 MG, 1X/DAY:QD
     Route: 065
     Dates: start: 20160825, end: 20160908
  8. TEDUGLUTIDE [Suspect]
     Active Substance: TEDUGLUTIDE
     Dosage: 2.8 MG, 1X/DAY:QD
     Route: 065
     Dates: start: 20160825, end: 20160908
  9. TEDUGLUTIDE [Suspect]
     Active Substance: TEDUGLUTIDE
     Dosage: 2.6 UNK, 1X/DAY:QD
     Route: 065
     Dates: start: 20160909, end: 20160914
  10. TEDUGLUTIDE [Suspect]
     Active Substance: TEDUGLUTIDE
     Dosage: 2.8 MG, 1X/DAY:QD
     Route: 065
     Dates: start: 20160915, end: 20161107
  11. TEDUGLUTIDE [Suspect]
     Active Substance: TEDUGLUTIDE
     Dosage: 2.8 MG, 1X/DAY:QD
     Route: 065
     Dates: start: 20161108, end: 20161206
  12. TEDUGLUTIDE [Suspect]
     Active Substance: TEDUGLUTIDE
     Dosage: 2.8 MG, 1X/DAY:QD
     Route: 065
     Dates: start: 20161108, end: 20161206
  13. TEDUGLUTIDE [Suspect]
     Active Substance: TEDUGLUTIDE
     Dosage: 2.8 MG, 1X/DAY:QD
     Route: 065
     Dates: start: 20170214, end: 20170220
  14. TEDUGLUTIDE [Suspect]
     Active Substance: TEDUGLUTIDE
     Dosage: 2.8 MG, 1X/DAY:QD
     Route: 065
     Dates: start: 20170412
  15. TEDUGLUTIDE [Suspect]
     Active Substance: TEDUGLUTIDE
     Dosage: 2.8 MG, 1X/DAY:QD
     Route: 065
     Dates: start: 20170412, end: 20181129
  16. TEDUGLUTIDE [Suspect]
     Active Substance: TEDUGLUTIDE
     Indication: SHORT-BOWEL SYNDROME
     Dosage: 3 MG, 1X/DAY:QD
     Route: 065
     Dates: start: 20160804, end: 20160824
  17. TEDUGLUTIDE [Suspect]
     Active Substance: TEDUGLUTIDE
     Dosage: 2.6 UNK, 1X/DAY:QD
     Route: 065
     Dates: start: 20160909, end: 20160914
  18. TEDUGLUTIDE [Suspect]
     Active Substance: TEDUGLUTIDE
     Dosage: 2.8 MG, 1X/DAY:QD
     Route: 065
     Dates: start: 20170412
  19. TEDUGLUTIDE [Suspect]
     Active Substance: TEDUGLUTIDE
     Dosage: 2.8 MG, 1X/DAY:QD
     Route: 065
     Dates: start: 20170412, end: 20181129
  20. TEDUGLUTIDE [Suspect]
     Active Substance: TEDUGLUTIDE
     Dosage: 2.8 MG, 1X/DAY:QD
     Route: 065
     Dates: start: 20170214, end: 20170220
  21. TEDUGLUTIDE [Suspect]
     Active Substance: TEDUGLUTIDE
     Dosage: 2.6 MG, 1X/DAY:QD
     Route: 065
     Dates: start: 20170303, end: 20170411
  22. TEDUGLUTIDE [Suspect]
     Active Substance: TEDUGLUTIDE
     Dosage: 2.8 MG, 1X/DAY:QD
     Route: 065
     Dates: start: 20170412
  23. TEDUGLUTIDE [Suspect]
     Active Substance: TEDUGLUTIDE
     Dosage: 2.4 MILLIGRAM,(0.05MG/KG), QD
     Route: 065
     Dates: start: 20181130
  24. TEDUGLUTIDE [Suspect]
     Active Substance: TEDUGLUTIDE
     Dosage: 2.4 MILLIGRAM,(0.05MG/KG), QD
     Route: 065
     Dates: start: 20181130
  25. LOVENOX [Concomitant]
     Active Substance: ENOXAPARIN SODIUM
     Indication: SUPERIOR VENA CAVA SYNDROME
  26. COUMADINE [Concomitant]
     Active Substance: WARFARIN SODIUM
     Indication: PROPHYLAXIS
  27. TEDUGLUTIDE [Suspect]
     Active Substance: TEDUGLUTIDE
     Dosage: 2.8 MG, 1X/DAY:QD
     Route: 065
     Dates: start: 20161108, end: 20161206
  28. TEDUGLUTIDE [Suspect]
     Active Substance: TEDUGLUTIDE
     Dosage: 2.8 MG, 1X/DAY:QD
     Route: 065
     Dates: start: 20170412
  29. LOVENOX [Concomitant]
     Active Substance: ENOXAPARIN SODIUM
     Indication: THROMBOSIS
  30. CALCIUM CARBONATE. [Concomitant]
     Active Substance: CALCIUM CARBONATE
     Indication: SHORT-BOWEL SYNDROME
     Dosage: 500 MILLIGRAM, QD
     Route: 048
     Dates: start: 20200214
  31. TEDUGLUTIDE [Suspect]
     Active Substance: TEDUGLUTIDE
     Indication: SHORT-BOWEL SYNDROME
     Dosage: 3 MG, 1X/DAY:QD
     Route: 065
     Dates: start: 20160804, end: 20160824
  32. TEDUGLUTIDE [Suspect]
     Active Substance: TEDUGLUTIDE
     Dosage: 2.8 MG, 1X/DAY:QD
     Route: 065
     Dates: start: 20160825, end: 20160908
  33. TEDUGLUTIDE [Suspect]
     Active Substance: TEDUGLUTIDE
     Dosage: 2.6 UNK, 1X/DAY:QD
     Route: 065
     Dates: start: 20160909, end: 20160914
  34. TEDUGLUTIDE [Suspect]
     Active Substance: TEDUGLUTIDE
     Dosage: 2.8 MG, 1X/DAY:QD
     Route: 065
     Dates: start: 20161108, end: 20161206
  35. TEDUGLUTIDE [Suspect]
     Active Substance: TEDUGLUTIDE
     Dosage: 2.8 MG, 1X/DAY:QD
     Route: 065
     Dates: start: 20170214, end: 20170220
  36. TEDUGLUTIDE [Suspect]
     Active Substance: TEDUGLUTIDE
     Dosage: 2.8 MG, 1X/DAY:QD
     Route: 065
     Dates: start: 20170412, end: 20181129
  37. TEDUGLUTIDE [Suspect]
     Active Substance: TEDUGLUTIDE
     Dosage: 2.6 UNK, 1X/DAY:QD
     Route: 065
     Dates: start: 20160909, end: 20160914
  38. CONTRAMAL [Concomitant]
     Active Substance: TRAMADOL HYDROCHLORIDE
     Indication: BACK PAIN
  39. TEDUGLUTIDE [Suspect]
     Active Substance: TEDUGLUTIDE
     Dosage: 2.8 MG, 1X/DAY:QD
     Route: 065
     Dates: start: 20160915, end: 20161107
  40. TEDUGLUTIDE [Suspect]
     Active Substance: TEDUGLUTIDE
     Dosage: 2.8 MG, 1X/DAY:QD
     Route: 065
     Dates: start: 20160915, end: 20161107
  41. TEDUGLUTIDE [Suspect]
     Active Substance: TEDUGLUTIDE
     Dosage: 2.8 MG, 1X/DAY:QD
     Route: 065
     Dates: start: 20160915, end: 20161107
  42. TEDUGLUTIDE [Suspect]
     Active Substance: TEDUGLUTIDE
     Dosage: 2.6 MG, 1X/DAY:QD
     Route: 065
     Dates: start: 20170303, end: 20170411
  43. TEDUGLUTIDE [Suspect]
     Active Substance: TEDUGLUTIDE
     Dosage: 2.6 MG, 1X/DAY:QD
     Route: 065
     Dates: start: 20170303, end: 20170411
  44. TEDUGLUTIDE [Suspect]
     Active Substance: TEDUGLUTIDE
     Dosage: 2.8 MG, 1X/DAY:QD
     Route: 065
     Dates: start: 20170412, end: 20181129
  45. TEDUGLUTIDE [Suspect]
     Active Substance: TEDUGLUTIDE
     Dosage: 2.4 MILLIGRAM,(0.05MG/KG), QD
     Route: 065
     Dates: start: 20181130
  46. MAGNESIUM SULFATE. [Concomitant]
     Active Substance: MAGNESIUM SULFATE
     Indication: SHORT-BOWEL SYNDROME
     Dosage: 15000 MILLIGRAM, CONTINUOUS RUNNING
     Route: 042
     Dates: start: 201911
  47. COLECALCIFEROL [Concomitant]
     Active Substance: CHOLECALCIFEROL
     Indication: SHORT-BOWEL SYNDROME
     Dosage: 100000 INTERNATIONAL UNIT, MONTHLY
     Route: 048
     Dates: start: 20200214

REACTIONS (1)
  - Catheter placement [Recovered/Resolved]

NARRATIVE: CASE EVENT DATE: 20170929
